FAERS Safety Report 14818882 (Version 2)
Quarter: 2018Q3

REPORT INFORMATION
  Report Type: Report from Study
  Country: US (occurrence: US)
  Receive Date: 20180427
  Receipt Date: 20180702
  Transmission Date: 20181010
  Serious: Yes (Hospitalization, Other)
  Sender: FDA-Public Use
  Company Number: US-B.I. PHARMACEUTICALS,INC./RIDGEFIELD-2017-BI-039808

PATIENT
  Sex: Female

DRUGS (1)
  1. OFEV [Suspect]
     Active Substance: NINTEDANIB
     Indication: IDIOPATHIC PULMONARY FIBROSIS
     Route: 048
     Dates: start: 20170619

REACTIONS (9)
  - Dyspnoea [Unknown]
  - Productive cough [Unknown]
  - Delirium [Unknown]
  - Vomiting [Unknown]
  - Diverticulitis [Unknown]
  - Pain [Unknown]
  - Constipation [Unknown]
  - Rectal haemorrhage [Unknown]
  - Diarrhoea [Unknown]
